FAERS Safety Report 6242082-0 (Version None)
Quarter: 2009Q2

REPORT INFORMATION
  Report Type: 
  Country: None (occurrence: None)
  Receive Date: 20090622
  Receipt Date: 20090608
  Transmission Date: 20091009
  Serious: Yes (Hospitalization, Other)
  Sender: FDA-Public Use
  Company Number: ADE2009-0665

PATIENT
  Age: 61 Year
  Sex: Female

DRUGS (2)
  1. AMLODIPINE [Suspect]
  2. CANDESARTAN CILEXETIL [Suspect]

REACTIONS (3)
  - DEVICE LEAKAGE [None]
  - ENDOTRACHEAL INTUBATION COMPLICATION [None]
  - LARYNGEAL OEDEMA [None]
